FAERS Safety Report 8897105 (Version 1)
Quarter: 2012Q4

REPORT INFORMATION
  Report Type: Spontaneous
  Country: IN (occurrence: None)
  Receive Date: 20121105
  Receipt Date: 20121105
  Transmission Date: 20130627
  Serious: Yes (Hospitalization)
  Sender: FDA-Public Use
  Company Number: IPC201210-000557

PATIENT
  Age: 26 Year
  Sex: Male

DRUGS (1)
  1. CHLOROQUINE PHOSPHATE [Suspect]
     Indication: MALARIA

REACTIONS (8)
  - Mania [None]
  - Affective disorder [None]
  - Psychomotor hyperactivity [None]
  - Logorrhoea [None]
  - Aggression [None]
  - Irritability [None]
  - Grandiosity [None]
  - Aggression [None]
